FAERS Safety Report 20995398 (Version 1)
Quarter: 2022Q2

REPORT INFORMATION
  Report Type: Report from Study
  Country: CA (occurrence: CA)
  Receive Date: 20220622
  Receipt Date: 20220622
  Transmission Date: 20220720
  Serious: Yes (Hospitalization)
  Sender: FDA-Public Use
  Company Number: CA-JNJFOC-20220634992

PATIENT
  Age: 0 Year

DRUGS (1)
  1. REMICADE [Suspect]
     Active Substance: INFLIXIMAB
     Indication: Crohn^s disease
     Route: 063

REACTIONS (2)
  - Hospitalisation [Unknown]
  - Exposure via breast milk [Not Recovered/Not Resolved]

NARRATIVE: CASE EVENT DATE: 20220601
